FAERS Safety Report 9253378 (Version 1)
Quarter: 2013Q2

REPORT INFORMATION
  Report Type: Spontaneous
  Country: US (occurrence: US)
  Receive Date: 20130425
  Receipt Date: 20130425
  Transmission Date: 20140414
  Serious: No
  Sender: FDA-Public Use
  Company Number: US-009507513-2011SP059297

PATIENT
  Age: 49 Year
  Sex: Female

DRUGS (5)
  1. VICTRELIS [Suspect]
     Indication: HEPATITIS C
     Dates: start: 20110603, end: 20111215
  2. REBETOL [Suspect]
     Indication: HEPATITIS C
     Dosage: UNK
     Dates: start: 20110303, end: 20110727
  3. REBETOL [Suspect]
     Dosage: 800 MG, UNK
     Dates: start: 20110728, end: 201108
  4. REBETOL [Suspect]
     Dosage: UNK
     Dates: start: 201109, end: 20111215
  5. PEGASYS [Suspect]
     Indication: HEPATITIS C
     Dates: start: 20110303, end: 20111215

REACTIONS (2)
  - Therapeutic response decreased [Unknown]
  - Anaemia [Unknown]
